FAERS Safety Report 6616639-9 (Version None)
Quarter: 2010Q1

REPORT INFORMATION
  Report Type: 
  Country: None (occurrence: None)
  Receive Date: 20100305
  Receipt Date: 20100225
  Transmission Date: 20100710
  Serious: Yes (Other)
  Sender: FDA-Public Use
  Company Number: US-ABBOTT-10P-163-0628749-00

PATIENT
  Sex: Male
  Weight: 95.794 kg

DRUGS (12)
  1. HUMIRA [Suspect]
     Indication: RHEUMATOID ARTHRITIS
     Route: 058
     Dates: start: 20060101
  2. FOLIC ACID [Concomitant]
     Indication: RHEUMATOID ARTHRITIS
  3. LANOXIN [Concomitant]
     Indication: ATRIAL FIBRILLATION
  4. ZOLOFT [Concomitant]
     Indication: DEPRESSION
  5. HYDROCHLOROTHIAZIDE [Concomitant]
     Indication: HYPERTENSION
  6. SULFASALAZINE [Concomitant]
     Indication: RHEUMATOID ARTHRITIS
  7. PRILOSEC [Concomitant]
     Indication: ULCER
  8. CELEBREX [Concomitant]
     Indication: RHEUMATOID ARTHRITIS
  9. METHOTREXATE [Concomitant]
     Indication: RHEUMATOID ARTHRITIS
  10. JANTOVEN [Concomitant]
     Indication: DRUG USE FOR UNKNOWN INDICATION
  11. VITAMINS [Concomitant]
     Indication: VITAMIN SUPPLEMENTATION
  12. VITAMIN B6 [Concomitant]
     Indication: VITAMIN SUPPLEMENTATION

REACTIONS (3)
  - BLOOD COUNT ABNORMAL [None]
  - FUNGAL INFECTION [None]
  - MYELODYSPLASTIC SYNDROME [None]
